FAERS Safety Report 8075928-4 (Version None)
Quarter: 2012Q1

REPORT INFORMATION
  Report Type: 
  Country: None (occurrence: None)
  Receive Date: 20120127
  Receipt Date: 20120123
  Transmission Date: 20120608
  Serious: Yes (Other)
  Sender: FDA-Public Use
  Company Number: US-PFIZER INC-2012018703

PATIENT
  Sex: Female
  Weight: 70.295 kg

DRUGS (7)
  1. METFORMIN [Concomitant]
     Dosage: 1000 MG, 2X/DAY
  2. VITAMIN D [Concomitant]
     Dosage: 2000 UNITS, 1X/DAY
  3. ACTOS [Concomitant]
     Dosage: 50 MG, 1X/DAY
  4. ASPIRIN [Concomitant]
     Dosage: UNK
  5. XALATAN [Suspect]
     Indication: GLAUCOMA
     Dosage: UNK, 1X/DAY
     Route: 047
  6. SIMVASTATIN [Concomitant]
     Dosage: 40 MG, 1X/DAY
  7. ZETIA [Concomitant]
     Dosage: 10 MG, 1X/DAY

REACTIONS (4)
  - MACULAR DEGENERATION [None]
  - BLOOD GLUCOSE INCREASED [None]
  - CATARACT [None]
  - PHOTOPSIA [None]
